FAERS Safety Report 8180068-X (Version None)
Quarter: 2012Q1

REPORT INFORMATION
  Report Type: 
  Country: None (occurrence: None)
  Receive Date: 20120302
  Receipt Date: 20120302
  Transmission Date: 20120608
  Serious: Yes (Other)
  Sender: FDA-Public Use
  Company Number: None

PATIENT
  Age: 56 Year
  Sex: Female
  Weight: 70.306 kg

DRUGS (1)
  1. CIPROFLOXACIN HCL [Suspect]
     Indication: DIVERTICULITIS
     Dosage: 500MG
     Route: 048
     Dates: start: 20120225, end: 20120301

REACTIONS (9)
  - DYSSTASIA [None]
  - ARTHRALGIA [None]
  - MENTAL STATUS CHANGES [None]
  - THINKING ABNORMAL [None]
  - FEELING ABNORMAL [None]
  - INSOMNIA [None]
  - SENSATION OF HEAVINESS [None]
  - PAIN IN EXTREMITY [None]
  - COMMUNICATION DISORDER [None]
